FAERS Safety Report 26127070 (Version 1)
Quarter: 2025Q4

REPORT INFORMATION
  Report Type: Spontaneous
  Country: US (occurrence: US)
  Receive Date: 20251205
  Receipt Date: 20251205
  Transmission Date: 20260117
  Serious: Yes (Hospitalization, Other)
  Sender: VIVUS
  Company Number: US-VIVUS, Inc.- 2025V10000961

PATIENT
  Sex: Female

DRUGS (1)
  1. QSYMIA [Suspect]
     Active Substance: PHENTERMINE HYDROCHLORIDE\TOPIRAMATE
     Indication: Product used for unknown indication
     Dosage: 1 DOSAGE FORM, QD
     Route: 048
     Dates: end: 20250811

REACTIONS (2)
  - Coronary artery stenosis [Not Recovered/Not Resolved]
  - Arthritis [Not Recovered/Not Resolved]
